FAERS Safety Report 22996566 (Version 3)
Quarter: 2024Q2

REPORT INFORMATION
  Report Type: Report from Study
  Country: DE (occurrence: DE)
  Receive Date: 20230928
  Receipt Date: 20240415
  Transmission Date: 20240716
  Serious: Yes (Hospitalization, Other)
  Sender: FDA-Public Use
  Company Number: DE-CELLTRION INC.-2023DE018615

PATIENT

DRUGS (32)
  1. ADALIMUMAB-AATY [Suspect]
     Active Substance: ADALIMUMAB-AATY
     Indication: Product used for unknown indication
     Dosage: 40MG EVERY 2 WEEKS
     Route: 058
  2. ADALIMUMAB-AATY [Suspect]
     Active Substance: ADALIMUMAB-AATY
     Dosage: 40 MG
     Route: 058
     Dates: start: 202111, end: 20220324
  3. ADALIMUMAB-AATY [Suspect]
     Active Substance: ADALIMUMAB-AATY
     Dosage: 40 MG
     Route: 058
     Dates: end: 20220922
  4. ADALIMUMAB-AATY [Suspect]
     Active Substance: ADALIMUMAB-AATY
     Dosage: 40 MG
     Route: 058
     Dates: end: 20230322
  5. ADALIMUMAB-AATY [Suspect]
     Active Substance: ADALIMUMAB-AATY
     Dosage: 40 MG
     Route: 058
     Dates: end: 20230920
  6. METHOTREXATE SODIUM [Concomitant]
     Active Substance: METHOTREXATE SODIUM
     Dosage: 7,5MG/W
  7. METHOTREXATE SODIUM [Concomitant]
     Active Substance: METHOTREXATE SODIUM
     Dosage: 10,0
  8. METHOTREXATE SODIUM [Concomitant]
     Active Substance: METHOTREXATE SODIUM
     Dosage: 10,0
  9. METHOTREXATE SODIUM [Concomitant]
     Active Substance: METHOTREXATE SODIUM
     Dosage: 10,0
  10. METHOTREXATE SODIUM [Concomitant]
     Active Substance: METHOTREXATE SODIUM
     Dosage: 10,0
     Dates: end: 201704
  11. METHOTREXATE SODIUM [Concomitant]
     Active Substance: METHOTREXATE SODIUM
     Dosage: 10,0
  12. METHOTREXATE SODIUM [Concomitant]
     Active Substance: METHOTREXATE SODIUM
     Dosage: 10,0
  13. METHOTREXATE SODIUM [Concomitant]
     Active Substance: METHOTREXATE SODIUM
     Dosage: 1,0
  14. METHOTREXATE SODIUM [Concomitant]
     Active Substance: METHOTREXATE SODIUM
     Dosage: 7,5
  15. METHOTREXATE SODIUM [Concomitant]
     Active Substance: METHOTREXATE SODIUM
     Dosage: 10,0
  16. METHOTREXATE SODIUM [Concomitant]
     Active Substance: METHOTREXATE SODIUM
     Dosage: 7,5
  17. METHOTREXATE SODIUM [Concomitant]
     Active Substance: METHOTREXATE SODIUM
     Dosage: 7,5
     Dates: end: 202110
  18. METHOTREXATE SODIUM [Concomitant]
     Active Substance: METHOTREXATE SODIUM
     Dosage: 7,5
  19. METHOTREXATE SODIUM [Concomitant]
     Active Substance: METHOTREXATE SODIUM
     Dosage: 7,5
  20. METHOTREXATE SODIUM [Concomitant]
     Active Substance: METHOTREXATE SODIUM
     Dosage: 7,5
  21. METHOTREXATE SODIUM [Concomitant]
     Active Substance: METHOTREXATE SODIUM
     Dosage: 7,5
  22. HUMIRA [Concomitant]
     Active Substance: ADALIMUMAB
     Dosage: 40 MG
     Dates: start: 201601, end: 20160118
  23. HUMIRA [Concomitant]
     Active Substance: ADALIMUMAB
     Dosage: 40 MG
     Dates: end: 20160429
  24. HUMIRA [Concomitant]
     Active Substance: ADALIMUMAB
     Dosage: 40 MG
     Dates: end: 20160713
  25. HUMIRA [Concomitant]
     Active Substance: ADALIMUMAB
     Dosage: 40 MG
     Dates: end: 20170213
  26. HUMIRA [Concomitant]
     Active Substance: ADALIMUMAB
     Dosage: 40 MG
     Dates: start: 201706, end: 20170728
  27. HUMIRA [Concomitant]
     Active Substance: ADALIMUMAB
     Dosage: 40 MG
     Dates: end: 20180125
  28. HUMIRA [Concomitant]
     Active Substance: ADALIMUMAB
     Dosage: 40 MG
     Dates: end: 20180713
  29. HUMIRA [Concomitant]
     Active Substance: ADALIMUMAB
     Dosage: 40 MG
     Dates: end: 20190227
  30. HUMIRA [Concomitant]
     Active Substance: ADALIMUMAB
     Dosage: 40 MG
     Dates: end: 20190826
  31. HUMIRA [Concomitant]
     Active Substance: ADALIMUMAB
     Dosage: 40 MG
     Dates: end: 20200625
  32. HUMIRA [Concomitant]
     Active Substance: ADALIMUMAB
     Dosage: 40 MG
     Dates: end: 20210301

REACTIONS (5)
  - Hiatus hernia [Recovered/Resolved]
  - Iron deficiency anaemia [Recovered/Resolved]
  - Gastrooesophageal reflux disease [Recovered/Resolved]
  - Pneumonia [Recovered/Resolved]
  - COVID-19 [Recovered/Resolved]

NARRATIVE: CASE EVENT DATE: 20230113
